FAERS Safety Report 7854913-9 (Version None)
Quarter: 2011Q4

REPORT INFORMATION
  Report Type: 
  Country: None (occurrence: None)
  Receive Date: 20111026
  Receipt Date: 20111014
  Transmission Date: 20120403
  Serious: Yes (Other)
  Sender: FDA-Public Use
  Company Number: PHHY2011FR82493

PATIENT
  Sex: Female
  Weight: 58 kg

DRUGS (5)
  1. AMIODARONE HCL [Suspect]
     Indication: ATRIAL FIBRILLATION
     Dosage: 100 MG, QD
     Dates: start: 20070417
  2. ALENDRONATE SODIUM [Concomitant]
     Indication: OSTEOPOROSIS
     Dosage: 5600 IU, WEEKLY
     Dates: start: 20070515
  3. PREVISCAN [Suspect]
     Indication: ATRIAL FIBRILLATION
     Dosage: 20 MG, 5 MG IN MORNING AND 10 MG EVENING
     Dates: start: 20110315
  4. ATORVASTATIN CALCIUM [Concomitant]
     Indication: PROPHYLAXIS
     Dosage: 10 MG, QD
  5. RASILEZ [Suspect]
     Indication: HYPERTENSION
     Dosage: 1 DF, DAILY
     Dates: start: 20110701

REACTIONS (1)
  - BLOOD POTASSIUM INCREASED [None]
